FAERS Safety Report 20961659 (Version 1)
Quarter: 2022Q2

REPORT INFORMATION
  Report Type: Spontaneous
  Country: US (occurrence: None)
  Receive Date: 20220614
  Receipt Date: 20220614
  Transmission Date: 20220721
  Serious: Yes (Other)
  Sender: FDA-Public Use
  Company Number: None

PATIENT
  Age: 42 Year
  Sex: Male
  Weight: 80.55 kg

DRUGS (2)
  1. JATENZO [Suspect]
     Active Substance: TESTOSTERONE UNDECANOATE
     Indication: Hypogonadism
     Dosage: OTHER QUANTITY : 120 CAPSULE(S);?FREQUENCY : TWICE A DAY;?
     Route: 048
     Dates: start: 20220520, end: 20220524
  2. ANASTROZOLE [Concomitant]
     Active Substance: ANASTROZOLE

REACTIONS (9)
  - Tachyphrenia [None]
  - Middle insomnia [None]
  - Fatigue [None]
  - Depressed level of consciousness [None]
  - Depression [None]
  - Anxiety [None]
  - Pain [None]
  - Product lot number issue [None]
  - Product quality issue [None]

NARRATIVE: CASE EVENT DATE: 20220520
